FAERS Safety Report 4829990-X (Version None)
Quarter: 2005Q4

REPORT INFORMATION
  Report Type: 
  Country: None (occurrence: None)
  Receive Date: 20051114
  Receipt Date: 20051103
  Transmission Date: 20060501
  Serious: Yes (Death)
  Sender: FDA-Public Use
  Company Number: 2005-11-0231

PATIENT
  Age: 74 Year
  Sex: Male

DRUGS (12)
  1. ALBUTEROL SULFATE HFA [Suspect]
     Dosage: 100 MCG INHALATION
     Route: 055
  2. SPIRIVA (TIOTROPIUM BROMIDE) ORAL AEROSOL [Suspect]
     Dosage: 18 MCG INHALATION
     Route: 055
  3. AMITRIPTYLINE HCL [Suspect]
     Dosage: 25 MG QD ORAL
     Route: 048
  4. CLARITHROMYCIN [Suspect]
     Dosage: 250 MG BID ORAL
     Route: 048
  5. MENTHOL [Suspect]
     Dosage: INHALATION
     Route: 055
  6. OXYGEN [Suspect]
     Dosage: 1360 L
  7. ACETAMINOPHEN [Suspect]
     Dosage: 1000 MG QID ORAL
     Route: 048
  8. PREDNISOLONE [Suspect]
     Dosage: 5 MG QD ORAL
     Route: 048
  9. SERETIDE (SALMETEROL XINAFOATE/FLUTICASONE PROPIONAT [Suspect]
     Dosage: 2 PUFFS BID INAHATION
     Route: 055
  10. SUMATRIPTAN SUCCINATE [Suspect]
     Dosage: 20MG/0.1 ML NASAL SPRAY
     Route: 045
  11. VERAPAMIL [Suspect]
     Dosage: 120 MG TID ORAL
     Route: 048
  12. EUCALYPTUS OIL [Suspect]
     Dosage: INHALATION
     Route: 055

REACTIONS (2)
  - CHRONIC OBSTRUCTIVE PULMONARY DISEASE [None]
  - LOWER RESPIRATORY TRACT INFECTION [None]
